FAERS Safety Report 7874672-3 (Version None)
Quarter: 2011Q4

REPORT INFORMATION
  Report Type: 
  Country: None (occurrence: None)
  Receive Date: 20111014
  Receipt Date: 20110104
  Transmission Date: 20120403
  Serious: Yes (Hospitalization)
  Sender: FDA-Public Use
  Company Number: 1000017394

PATIENT
  Age: 31 Year
  Sex: Female
  Weight: 61.82 kg

DRUGS (3)
  1. LEXAPRO [Suspect]
     Indication: ANXIETY
     Dosage: 20 MG (20 MG, 1 IN 1 D), ORAL
     Route: 048
     Dates: start: 20100901
  2. RETIN A GEL 0.1% (TRETINOIN) (TRETINOIN) [Concomitant]
  3. PRENATAL VITAMINS WITH DHA (PRENATAL VITAMINS WITH DHA) (PRENATAL VITA [Concomitant]

REACTIONS (3)
  - URINARY TRACT INFECTION [None]
  - MATERNAL EXPOSURE DURING PREGNANCY [None]
  - ABORTION MISSED [None]
